FAERS Safety Report 12648098 (Version 1)
Quarter: 2016Q3

REPORT INFORMATION
  Report Type: Spontaneous
  Country: US (occurrence: None)
  Receive Date: 20160811
  Receipt Date: 20160811
  Transmission Date: 20161109
  Serious: No
  Sender: FDA-Public Use
  Company Number: None

PATIENT
  Age: 51 Year
  Sex: Female

DRUGS (13)
  1. COPAXONE [Suspect]
     Active Substance: GLATIRAMER ACETATE
     Indication: ATTENTION DEFICIT/HYPERACTIVITY DISORDER
     Route: 058
     Dates: start: 20151201, end: 20160810
  2. METHYLPHENIDATE. [Concomitant]
     Active Substance: METHYLPHENIDATE
  3. BENADRYL [Concomitant]
     Active Substance: DIPHENHYDRAMINE HYDROCHLORIDE
  4. ATENOLOL. [Concomitant]
     Active Substance: ATENOLOL
  5. TIZANIDINE. [Concomitant]
     Active Substance: TIZANIDINE
  6. DIAZEPAM. [Concomitant]
     Active Substance: DIAZEPAM
  7. DULOXETINE. [Concomitant]
     Active Substance: DULOXETINE
  8. COPAXONE [Suspect]
     Active Substance: GLATIRAMER ACETATE
     Indication: MAJOR DEPRESSION
     Route: 058
     Dates: start: 20151201, end: 20160810
  9. RABEPRAZOLE [Concomitant]
     Active Substance: RABEPRAZOLE
  10. LYRICA [Concomitant]
     Active Substance: PREGABALIN
  11. HCTZ [Concomitant]
     Active Substance: HYDROCHLOROTHIAZIDE
  12. AMITRIPTYLINE [Concomitant]
     Active Substance: AMITRIPTYLINE
  13. COPAXONE [Suspect]
     Active Substance: GLATIRAMER ACETATE
     Indication: MULTIPLE SCLEROSIS
     Route: 058
     Dates: start: 20151201, end: 20160810

REACTIONS (3)
  - Injection site urticaria [None]
  - Keloid scar [None]
  - Cardiac disorder [None]

NARRATIVE: CASE EVENT DATE: 20160810
